FAERS Safety Report 9427225 (Version 1)
Quarter: 2013Q3

REPORT INFORMATION
  Report Type: Report from Study
  Country: US (occurrence: US)
  Receive Date: 20130730
  Receipt Date: 20130730
  Transmission Date: 20140515
  Serious: No
  Sender: FDA-Public Use
  Company Number: US-ABBOTT-12P-163-0978034-00

PATIENT
  Sex: Female

DRUGS (3)
  1. NIASPAN (COATED) [Suspect]
     Indication: HIGH DENSITY LIPOPROTEIN DECREASED
     Dosage: IN THE MORNING
     Dates: start: 201103
  2. CRESTOR [Concomitant]
     Indication: PRODUCT USED FOR UNKNOWN INDICATION
  3. IBUPROFEN [Concomitant]
     Indication: PRODUCT USED FOR UNKNOWN INDICATION
     Dosage: TWO DAILY

REACTIONS (4)
  - Erythema [Unknown]
  - Feeling hot [Unknown]
  - Paraesthesia [Unknown]
  - Flushing [Unknown]
